FAERS Safety Report 23849750 (Version 1)
Quarter: 2024Q2

REPORT INFORMATION
  Report Type: Spontaneous
  Country: US (occurrence: None)
  Receive Date: 20240512
  Receipt Date: 20240512
  Transmission Date: 20240716
  Serious: Yes (Hospitalization)
  Sender: FDA-Public Use
  Company Number: None

PATIENT
  Age: 72 Year
  Sex: Male
  Weight: 75 kg

DRUGS (1)
  1. PIPERACILLIN SODIUM\TAZOBACTAM SODIUM [Suspect]
     Active Substance: PIPERACILLIN SODIUM\TAZOBACTAM SODIUM
     Dosage: FREQUENCY : ONCE;?
     Route: 042
     Dates: start: 20190619, end: 20190712

REACTIONS (7)
  - Leukopenia [None]
  - Thrombocytopenia [None]
  - Extradural abscess [None]
  - Escherichia infection [None]
  - Pseudomonas infection [None]
  - Hypertransaminasaemia [None]
  - Dysphagia [None]

NARRATIVE: CASE EVENT DATE: 20190712
